FAERS Safety Report 24145209 (Version 4)
Quarter: 2024Q3

REPORT INFORMATION
  Report Type: Spontaneous
  Country: US (occurrence: US)
  Receive Date: 20240729
  Receipt Date: 20240814
  Transmission Date: 20241016
  Serious: Yes (Death, Other)
  Sender: ROCHE
  Company Number: US-ROCHE-10000030105

PATIENT
  Sex: Female

DRUGS (1)
  1. VABYSMO [Suspect]
     Active Substance: FARICIMAB\FARICIMAB-SVOA
     Indication: Macular degeneration
     Dosage: INJECTION IN LEFT EYE EVERY 8 TO 12 WEEKS
     Route: 050
     Dates: start: 2023

REACTIONS (7)
  - Death [Fatal]
  - Blindness [Not Recovered/Not Resolved]
  - Transient ischaemic attack [Unknown]
  - Seizure [Unknown]
  - Skin ulcer [Not Recovered/Not Resolved]
  - Wound [Unknown]
  - Off label use [Unknown]

NARRATIVE: CASE EVENT DATE: 20240613
